FAERS Safety Report 9384769 (Version 1)
Quarter: 2013Q3

REPORT INFORMATION
  Report Type: Spontaneous
  Country: US (occurrence: US)
  Receive Date: 20130705
  Receipt Date: 20130705
  Transmission Date: 20140515
  Serious: No
  Sender: FDA-Public Use
  Company Number: US-009507513-1306USA007023

PATIENT
  Sex: Female

DRUGS (3)
  1. PROVENTIL [Suspect]
     Indication: BRONCHOSPASM
     Dosage: 2-4 PUFFS AS NEEDED
     Route: 055
     Dates: start: 20130531
  2. ADVAIR [Concomitant]
  3. SINGULAIR [Concomitant]
     Route: 048

REACTIONS (1)
  - Bronchospasm [Not Recovered/Not Resolved]
